FAERS Safety Report 4564817-5 (Version None)
Quarter: 2005Q1

REPORT INFORMATION
  Report Type: 
  Country: None (occurrence: None)
  Receive Date: 20050128
  Receipt Date: 20040401
  Transmission Date: 20050727
  Serious: Yes (Hospitalization, Disabling)
  Sender: FDA-Public Use
  Company Number: US-MERCK-0404USA00097

PATIENT
  Age: 31 Year
  Sex: Male
  Weight: 64 kg

DRUGS (6)
  1. VIOXX [Suspect]
     Indication: EPIDIDYMITIS
     Route: 048
     Dates: start: 20010313, end: 20010317
  2. ARGININE GLUTAMATE [Concomitant]
     Route: 065
  3. TYROSINE [Concomitant]
     Route: 065
  4. VITAMIN B (UNSPECIFIED) [Concomitant]
     Route: 051
  5. VITAMINS (UNSPECIFIED) [Concomitant]
     Route: 065
  6. GARLIC EXTRACT [Concomitant]
     Route: 048

REACTIONS (16)
  - ACUTE MYOCARDIAL INFARCTION [None]
  - ANGINA UNSTABLE [None]
  - ANXIETY [None]
  - ARRHYTHMIA [None]
  - ARTERIOSPASM CORONARY [None]
  - ATRIAL SEPTAL DEFECT [None]
  - CARDIAC FAILURE CONGESTIVE [None]
  - CORONARY ARTERY DISEASE [None]
  - CORONARY ARTERY THROMBOSIS [None]
  - DYSLIPIDAEMIA [None]
  - EMOTIONAL DISTRESS [None]
  - ISCHAEMIC CARDIOMYOPATHY [None]
  - JOINT SPRAIN [None]
  - MITRAL VALVE INCOMPETENCE [None]
  - SUPRAVENTRICULAR TACHYCARDIA [None]
  - TRANSAMINASES INCREASED [None]
